FAERS Safety Report 19964433 (Version 1)
Quarter: 2021Q4

REPORT INFORMATION
  Report Type: Spontaneous
  Country: DE (occurrence: DE)
  Receive Date: 20211018
  Receipt Date: 20211018
  Transmission Date: 20220303
  Serious: Yes (Other)
  Sender: FDA-Public Use
  Company Number: None

PATIENT
  Age: 48 Year
  Sex: Female
  Weight: 70 kg

DRUGS (4)
  1. METAMIZOLE SODIUM [Interacting]
     Active Substance: METAMIZOLE SODIUM
     Indication: Pain
     Dosage: UNKNOWN
     Dates: start: 2021, end: 2021
  2. VENLAFAXINE HYDROCHLORIDE [Interacting]
     Active Substance: VENLAFAXINE HYDROCHLORIDE
     Indication: Depression
     Dosage: UNKNOWN
     Dates: start: 2021, end: 2021
  3. VENLAFAXINE HYDROCHLORIDE [Interacting]
     Active Substance: VENLAFAXINE HYDROCHLORIDE
     Indication: Depression
     Dosage: UNKNOWN
     Dates: start: 2021
  4. SERTRALINE HYDROCHLORIDE [Interacting]
     Active Substance: SERTRALINE HYDROCHLORIDE
     Indication: Depression
     Dosage: UNKNOWN
     Dates: start: 2020

REACTIONS (13)
  - Nervousness [Unknown]
  - Therapeutic product effect increased [Unknown]
  - Headache [Unknown]
  - Antidepressant discontinuation syndrome [Unknown]
  - Coordination abnormal [Unknown]
  - Drug ineffective [Unknown]
  - Mania [Unknown]
  - Suicidal ideation [Unknown]
  - Depression [Unknown]
  - Hyperhidrosis [Unknown]
  - Drug interaction [Unknown]
  - Restlessness [Unknown]
  - Therapeutic product effect decreased [Unknown]

NARRATIVE: CASE EVENT DATE: 20200101
